FAERS Safety Report 7627008-7 (Version None)
Quarter: 2011Q3

REPORT INFORMATION
  Report Type: 
  Country: None (occurrence: None)
  Receive Date: 20110721
  Receipt Date: 20110714
  Transmission Date: 20111222
  Serious: Yes (Hospitalization)
  Sender: FDA-Public Use
  Company Number: JP-MERCK-1105USA02919

PATIENT
  Age: 56 Year
  Sex: Female

DRUGS (9)
  1. SELBEX [Concomitant]
     Route: 065
     Dates: start: 20110422
  2. AMARYL [Concomitant]
     Route: 065
     Dates: start: 20110419
  3. LOXONIN [Concomitant]
     Route: 065
     Dates: start: 20110422
  4. JANUVIA [Suspect]
     Indication: TYPE 2 DIABETES MELLITUS
     Route: 048
     Dates: start: 20110419, end: 20110401
  5. ROCEPHIN [Concomitant]
     Route: 065
     Dates: start: 20110423, end: 20110425
  6. MUCODYNE [Concomitant]
     Route: 065
     Dates: start: 20110422, end: 20110423
  7. CLARITHROMYCIN [Concomitant]
     Route: 065
     Dates: start: 20110422, end: 20110423
  8. AMARYL [Concomitant]
     Route: 065
     Dates: start: 20060719, end: 20110418
  9. FLOMAX [Concomitant]
     Route: 065
     Dates: start: 20110423

REACTIONS (12)
  - BLOOD CREATINE PHOSPHOKINASE INCREASED [None]
  - BLOOD LACTATE DEHYDROGENASE INCREASED [None]
  - RESPIRATORY TRACT INFLAMMATION [None]
  - ASPARTATE AMINOTRANSFERASE INCREASED [None]
  - C-REACTIVE PROTEIN INCREASED [None]
  - NASOPHARYNGITIS [None]
  - ALANINE AMINOTRANSFERASE INCREASED [None]
  - PYREXIA [None]
  - BLOOD URINE PRESENT [None]
  - BACTERIAL TEST POSITIVE [None]
  - WHITE BLOOD CELLS URINE POSITIVE [None]
  - URINARY TRACT INFECTION [None]
